FAERS Safety Report 4476606-0 (Version None)
Quarter: 2004Q4

REPORT INFORMATION
  Report Type: 
  Country: None (occurrence: None)
  Receive Date: 20041013
  Receipt Date: 20040924
  Transmission Date: 20050328
  Serious: Yes (Hospitalization, Other)
  Sender: FDA-Public Use
  Company Number: USA040773742

PATIENT
  Age: 71 Year
  Sex: Female

DRUGS (5)
  1. FORTEO [Suspect]
     Indication: OSTEOPOROSIS
     Dates: start: 20030101
  2. SYNTHROID (LEVOTHYUROXINE SODIUM) [Concomitant]
  3. METFORMIN HCL [Concomitant]
  4. ZYRTEC (CETIRIZINE HYDROCHLIORIDE) [Concomitant]
  5. TRAZADONE (TRAZODONE) [Concomitant]

REACTIONS (6)
  - COLON OPERATION [None]
  - COUGH [None]
  - FALL [None]
  - INTERVERTEBRAL DISC PROTRUSION [None]
  - PHARMACEUTICAL PRODUCT COMPLAINT [None]
  - SPINAL FRACTURE [None]
